FAERS Safety Report 12435829 (Version 1)
Quarter: 2016Q2

REPORT INFORMATION
  Report Type: Spontaneous
  Country: US (occurrence: US)
  Receive Date: 20160603
  Receipt Date: 20160603
  Transmission Date: 20160815
  Serious: Yes (Congenital Anomaly, Other)
  Sender: FDA-Public Use
  Company Number: US-TEVA-664299USA

PATIENT
  Age: 61 Year
  Sex: Female
  Weight: 68.1 kg

DRUGS (1)
  1. ALENDRONIC ACID [Suspect]
     Active Substance: ALENDRONIC ACID
     Indication: OSTEOPENIA
     Route: 048
     Dates: start: 201601

REACTIONS (13)
  - Blood creatinine increased [Not Recovered/Not Resolved]
  - Fibrous dysplasia of bone [Not Recovered/Not Resolved]
  - Red blood cell count decreased [Not Recovered/Not Resolved]
  - Macular hole [Not Recovered/Not Resolved]
  - Polycystic liver disease [Not Recovered/Not Resolved]
  - Pruritus generalised [Not Recovered/Not Resolved]
  - Craniofacial deformity [Not Recovered/Not Resolved]
  - Congenital cystic kidney disease [Not Recovered/Not Resolved]
  - Retinal tear [Not Recovered/Not Resolved]
  - Solar dermatitis [Not Recovered/Not Resolved]
  - Cataract [Not Recovered/Not Resolved]
  - Metamorphopsia [Not Recovered/Not Resolved]
  - Visual acuity reduced [Not Recovered/Not Resolved]

NARRATIVE: CASE EVENT DATE: 201602
